FAERS Safety Report 8047892 (Version 5)
Quarter: 2013Q4

REPORT INFORMATION
  Report Type: Spontaneous
  Country: US (occurrence: US)
  Receive Date: 20110721
  Receipt Date: 20131001
  Transmission Date: 20140711
  Serious: Yes (Hospitalization, Congenital Anomaly, Other)
  Sender: FDA-Public Use
  Company Number: US-PFIZER INC-2011159711

PATIENT
  Sex: Male

DRUGS (13)
  1. ZOLOFT [Suspect]
     Indication: DEPRESSION
     Dosage: UNK
     Route: 064
     Dates: start: 20050523, end: 200801
  2. SERTRALINE HCL [Suspect]
     Dosage: UNK
     Route: 064
     Dates: start: 200505, end: 200801
  3. ORTHO TRI-CYCLEN [Concomitant]
     Dosage: UNK
     Route: 064
  4. HYDROCODONE W/ACETAMINOPHEN [Concomitant]
     Dosage: UNK
     Route: 064
  5. AMOXICILLIN [Concomitant]
     Dosage: UNK
     Route: 064
  6. METHYLPREDNISOLONE [Concomitant]
     Dosage: UNK
     Route: 064
  7. ALBUTEROL [Concomitant]
     Dosage: UNK
     Route: 064
  8. AZITHROMYCIN Z-PAK [Concomitant]
     Dosage: UNK
     Route: 064
  9. PREDNISONE [Concomitant]
     Dosage: UNK
     Route: 064
  10. ZYRTEC [Concomitant]
     Dosage: UNK
     Route: 064
  11. NEXIUM [Concomitant]
     Dosage: UNK
     Route: 064
  12. BENADRYL [Concomitant]
     Dosage: UNK
     Route: 064
  13. AMOX TR-K CLV [Concomitant]
     Dosage: UNK
     Route: 064

REACTIONS (5)
  - Maternal exposure during pregnancy [Unknown]
  - Cleft lip [Unknown]
  - Nasal disorder [Unknown]
  - Cleft palate [Unknown]
  - Congenital anomaly [Unknown]
